FAERS Safety Report 7147274 (Version 3)
Quarter: 2014Q3

REPORT INFORMATION
  Report Type: Spontaneous
  Country: FR (occurrence: FR)
  Receive Date: 20091013
  Receipt Date: 20140922
  Transmission Date: 20150326
  Serious: Yes (Life-Threatening)
  Sender: FDA-Public Use
  Company Number: FR-ROCHE-660784

PATIENT
  Age: 36 Year
  Sex: Female

DRUGS (15)
  1. IZILOX [Concomitant]
     Active Substance: MOXIFLOXACIN HYDROCHLORIDE
     Route: 065
  2. MYAMBUTOL [Suspect]
     Active Substance: ETHAMBUTOL HYDROCHLORIDE
     Dosage: RE-STARTED
     Route: 048
  3. IMOVANE [Suspect]
     Active Substance: ZOPICLONE
     Indication: INSOMNIA
     Dosage: 1 TABLET DAILY (IN EVENING)
     Route: 065
     Dates: start: 20090427, end: 20090516
  4. BACTRIM [Suspect]
     Active Substance: SULFAMETHOXAZOLE\TRIMETHOPRIM
     Indication: ANTIFUNGAL PROPHYLAXIS
     Dosage: DOSE: 1 TABLET, FREQUENCY: DAILY (IN MORNING)
     Route: 048
     Dates: start: 20090425, end: 20090516
  5. PIRILENE [Suspect]
     Active Substance: PYRAZINAMIDE
     Indication: DISSEMINATED TUBERCULOSIS
     Dosage: 3 TABLETS DAILY (IN MORNING)
     Route: 048
     Dates: start: 20090425, end: 20090516
  6. FUZEON [Suspect]
     Active Substance: ENFUVIRTIDE
     Indication: HIV TEST POSITIVE
     Dosage: 90 MG/ML INJECTABLE SOLUTION(1 MORNING, 1 EVENING)
     Route: 058
     Dates: start: 20090503, end: 20090516
  7. RIFADINE [Suspect]
     Active Substance: RIFAMPIN
     Indication: DISSEMINATED TUBERCULOSIS
     Dosage: DOSE: 2 CAPSULES DAILY
     Route: 048
     Dates: start: 20090503, end: 20090516
  8. MYAMBUTOL [Suspect]
     Active Substance: ETHAMBUTOL HYDROCHLORIDE
     Indication: DISSEMINATED TUBERCULOSIS
     Dosage: DOSE: 3 TABLETS DAILY (IN MORNING)
     Route: 048
     Dates: start: 20090425, end: 20090516
  9. TRUVADA [Suspect]
     Active Substance: EMTRICITABINE\TENOFOVIR DISOPROXIL FUMARATE
     Indication: HIV TEST POSITIVE
     Dosage: 200 MG/245 MG TABLET, DOSE: 1 TABLET DAILY(IN EVENING)
     Route: 048
     Dates: start: 20090505, end: 20090516
  10. SINGULAIR [Suspect]
     Active Substance: MONTELUKAST SODIUM
     Indication: IMMUNE RECONSTITUTION INFLAMMATORY SYNDROME
     Dosage: 1 TABLET DAILY
     Route: 048
     Dates: start: 20090511, end: 20090516
  11. ANSATIPINE [Concomitant]
     Active Substance: RIFABUTIN
     Indication: TUBERCULOSIS
     Dosage: ANSATIPINE 150, 1 IN MORNING
     Route: 065
     Dates: start: 20090425, end: 20090503
  12. SUSTIVA [Suspect]
     Active Substance: EFAVIRENZ
     Indication: HIV TEST POSITIVE
     Dosage: 1 TABLET DAILY (IN EVENING)
     Route: 065
     Dates: start: 20090505, end: 20090516
  13. RIFADINE [Suspect]
     Active Substance: RIFAMPIN
     Dosage: RE-STARTED
     Route: 048
  14. RIMIFON [Suspect]
     Active Substance: ISONIAZID
     Indication: DISSEMINATED TUBERCULOSIS
     Dosage: 2 TABLETS DAILY (IN MORNING)
     Route: 048
     Dates: start: 20090425, end: 20090516
  15. ZACLAR [Concomitant]
     Indication: TUBERCULOSIS
     Route: 065
     Dates: start: 20090425, end: 20090503

REACTIONS (1)
  - Hepatitis fulminant [Recovered/Resolved]

NARRATIVE: CASE EVENT DATE: 20090515
